FAERS Safety Report 9326150 (Version 3)
Quarter: 2013Q3

REPORT INFORMATION
  Report Type: Report from Study
  Country: IT (occurrence: IT)
  Receive Date: 20130604
  Receipt Date: 20130725
  Transmission Date: 20140515
  Serious: Yes (Other)
  Sender: FDA-Public Use
  Company Number: IT-BAXTER-2013BAX019915

PATIENT
  Age: 74 Year
  Sex: Male
  Weight: 67 kg

DRUGS (28)
  1. ENDOXAN BAXTER [Suspect]
     Indication: B-CELL LYMPHOMA
     Route: 065
     Dates: start: 200911, end: 201001
  2. ONKOTRONE [Suspect]
     Indication: B-CELL LYMPHOMA
     Route: 065
     Dates: start: 201101, end: 20110510
  3. RITUXIMAB [Suspect]
     Indication: B-CELL LYMPHOMA
     Route: 065
     Dates: start: 200911, end: 201001
  4. RITUXIMAB [Suspect]
     Route: 065
     Dates: start: 201101, end: 20110511
  5. RITUXIMAB [Suspect]
     Route: 042
     Dates: start: 20121127
  6. BENDAMUSTINE [Suspect]
     Indication: B-CELL LYMPHOMA
     Route: 058
     Dates: start: 20121128
  7. BENDAMUSTINE [Suspect]
     Route: 058
     Dates: start: 20130201, end: 20130321
  8. CHLORPHENAMINE [Suspect]
     Indication: PRODUCT USED FOR UNKNOWN INDICATION
     Route: 042
     Dates: start: 20121127
  9. CHLORPHENAMINE [Suspect]
     Route: 042
     Dates: start: 20130201, end: 20130321
  10. HYDROCORTISONE [Suspect]
     Indication: PRODUCT USED FOR UNKNOWN INDICATION
     Route: 042
     Dates: start: 20121128
  11. GRANISETRON [Suspect]
     Indication: B-CELL LYMPHOMA
     Route: 042
     Dates: start: 20121128
  12. GRANISETRON [Suspect]
     Route: 042
     Dates: start: 20130201, end: 20130321
  13. LORATADINE [Suspect]
     Indication: PRODUCT USED FOR UNKNOWN INDICATION
     Route: 048
     Dates: start: 20130102
  14. LORATADINE [Suspect]
     Route: 048
     Dates: start: 20130130, end: 20130321
  15. PREDNISONE [Suspect]
     Indication: B-CELL LYMPHOMA
     Route: 065
     Dates: start: 201101, end: 20110510
  16. PREDNISONE [Suspect]
     Route: 048
     Dates: start: 20130102, end: 20130321
  17. PREDNISONE [Suspect]
     Route: 065
     Dates: start: 200911, end: 201001
  18. DOXORUBICIN [Suspect]
     Indication: B-CELL LYMPHOMA
     Route: 065
     Dates: start: 200911, end: 201001
  19. VINCRISTINE [Suspect]
     Indication: B-CELL LYMPHOMA
     Route: 065
     Dates: start: 200911, end: 201001
  20. FLUDARABINE [Suspect]
     Indication: B-CELL LYMPHOMA
     Route: 065
     Dates: start: 201101, end: 20110510
  21. DEXAMETHASONE [Suspect]
     Indication: B-CELL LYMPHOMA
     Route: 065
  22. CYTARABINE [Suspect]
     Indication: B-CELL LYMPHOMA
     Route: 065
  23. OXALIPLATIN [Suspect]
     Indication: B-CELL LYMPHOMA
     Route: 065
  24. PARACETAMOL [Concomitant]
     Indication: PRODUCT USED FOR UNKNOWN INDICATION
     Route: 065
     Dates: start: 20121127, end: 20130130
  25. HYDROCORTISONE [Concomitant]
     Indication: PRODUCT USED FOR UNKNOWN INDICATION
     Route: 065
     Dates: start: 20121127, end: 20121127
  26. LORAZEPAM [Concomitant]
     Indication: ANXIETY
     Route: 065
     Dates: start: 20121210
  27. MIANSERINE [Concomitant]
     Indication: ANXIETY
     Route: 065
  28. MIANSERINE [Concomitant]
     Indication: DEPRESSION

REACTIONS (1)
  - Lung neoplasm malignant [Not Recovered/Not Resolved]
